FAERS Safety Report 6060774-3 (Version None)
Quarter: 2009Q1

REPORT INFORMATION
  Report Type: 
  Country: None (occurrence: None)
  Receive Date: 20090202
  Receipt Date: 20090119
  Transmission Date: 20090719
  Serious: Yes (Other)
  Sender: FDA-Public Use
  Company Number: PHHY2009BR02173

PATIENT
  Sex: Female
  Weight: 65.5 kg

DRUGS (10)
  1. FLOTAC [Suspect]
     Indication: OSTEOARTHRITIS
     Dosage: 70 MG, BID
     Route: 048
     Dates: start: 20090116
  2. FLOTAC [Suspect]
     Dosage: UNK
     Route: 048
     Dates: start: 20060101
  3. PURAN T4 [Concomitant]
     Indication: HYPOTHYROIDISM
     Dosage: 1 TABLET
     Route: 048
  4. LIPLESS [Concomitant]
     Indication: BLOOD CHOLESTEROL
     Dosage: UNK
     Route: 048
  5. HYDERGINE [Concomitant]
     Indication: MEMORY IMPAIRMENT
     Dosage: 1 TABLET
     Route: 048
     Dates: start: 20090119
  6. SELOZOK [Concomitant]
     Indication: HYPERTENSION
     Dosage: 1 TABLET
     Route: 048
  7. HYGROTON [Concomitant]
     Indication: HYPERTENSION
     Dosage: 1 TABLET
     Route: 048
  8. CITONEURIN [Concomitant]
     Dosage: 1 TABLET IN MORNING
     Route: 048
  9. HORMONE [Concomitant]
     Indication: OSTEOPOROSIS
     Dosage: UNK
  10. MIRTAX [Concomitant]
     Dosage: UNK
     Dates: start: 20081001

REACTIONS (6)
  - ABASIA [None]
  - DRUG INEFFECTIVE [None]
  - FATIGUE [None]
  - INTERVERTEBRAL DISC PROTRUSION [None]
  - OSTEOARTHRITIS [None]
  - PAIN IN EXTREMITY [None]
